FAERS Safety Report 5091420-3 (Version None)
Quarter: 2006Q3

REPORT INFORMATION
  Report Type: 
  Country: None (occurrence: None)
  Receive Date: 20060727
  Receipt Date: 20060421
  Transmission Date: 20061208
  Serious: Yes (Other)
  Sender: FDA-Public Use
  Company Number: 2006054720

PATIENT
  Age: 63 Year
  Sex: Female
  Weight: 81.6475 kg

DRUGS (9)
  1. LYRICA [Suspect]
     Indication: DIABETIC NEUROPATHY
     Dosage: 75 MG (75 MG, 1 IN 1 D), UNKOWN
     Dates: start: 20060401
  2. NOVOLIN N [Concomitant]
  3. ELAVIL [Concomitant]
  4. ZOCOR [Concomitant]
  5. GLUCOPHAGE [Concomitant]
  6. MAXZIDE [Concomitant]
  7. DIOVAN [Concomitant]
  8. VIOXX [Concomitant]
  9. DARVON [Concomitant]

REACTIONS (3)
  - DIZZINESS [None]
  - DRY MOUTH [None]
  - VISION BLURRED [None]
